FAERS Safety Report 13571289 (Version 1)
Quarter: 2017Q2

REPORT INFORMATION
  Report Type: Report from Study
  Country: None (occurrence: BR)
  Receive Date: 20170523
  Receipt Date: 20170523
  Transmission Date: 20170830
  Serious: Yes (Hospitalization, Other)
  Sender: FDA-Public Use
  Company Number: BR-ABBVIE-17K-020-1981168-00

PATIENT
  Age: 52 Year
  Sex: Female
  Weight: 53 kg

DRUGS (1)
  1. HUMIRA [Suspect]
     Active Substance: ADALIMUMAB
     Indication: CROHN^S DISEASE
     Route: 058
     Dates: start: 20140710

REACTIONS (13)
  - Abdominal distension [Recovered/Resolved]
  - Arrhythmia [Not Recovered/Not Resolved]
  - Fallopian tube enlargement [Not Recovered/Not Resolved]
  - Alopecia [Not Recovered/Not Resolved]
  - Faecaloma [Recovered/Resolved]
  - Faecaloma [Recovered/Resolved]
  - Lactose intolerance [Recovering/Resolving]
  - Abdominal distension [Recovered/Resolved]
  - Faecaloma [Recovered/Resolved]
  - Abdominal distension [Recovered/Resolved]
  - Abdominal distension [Recovered/Resolved]
  - Faecaloma [Recovered/Resolved]
  - Anxiety [Not Recovered/Not Resolved]

NARRATIVE: CASE EVENT DATE: 2016
